FAERS Safety Report 14331055 (Version 5)
Quarter: 2018Q4

REPORT INFORMATION
  Report Type: Spontaneous
  Country: US (occurrence: US)
  Receive Date: 20171228
  Receipt Date: 20181211
  Transmission Date: 20190204
  Serious: Yes (Hospitalization, Other)
  Sender: FDA-Public Use
  Company Number: US-ABBVIE-17P-163-2129908-00

PATIENT
  Age: 59 Year
  Sex: Male
  Weight: 70.37 kg

DRUGS (37)
  1. TOPROL XL [Concomitant]
     Active Substance: METOPROLOL SUCCINATE
     Indication: HYPERTENSION
  2. NOVOLOG [Concomitant]
     Active Substance: INSULIN ASPART
     Indication: TYPE 2 DIABETES MELLITUS
     Dosage: INJECT 4 UNITS SUBCUTANEOUSLY 3 TIMES DAILY BEFORE MEALS
     Route: 058
  3. ZOLOFT [Concomitant]
     Active Substance: SERTRALINE HYDROCHLORIDE
     Indication: PRODUCT USED FOR UNKNOWN INDICATION
     Route: 048
  4. XANAX [Concomitant]
     Active Substance: ALPRAZOLAM
     Indication: ANXIETY DISORDER
     Route: 048
  5. ASPIRIN. [Concomitant]
     Active Substance: ASPIRIN
     Indication: PRODUCT USED FOR UNKNOWN INDICATION
  6. GABAPENTIN. [Concomitant]
     Active Substance: GABAPENTIN
     Indication: PRODUCT USED FOR UNKNOWN INDICATION
  7. ROPINIROLE. [Concomitant]
     Active Substance: ROPINIROLE
     Indication: PRODUCT USED FOR UNKNOWN INDICATION
  8. LOSARTAN. [Concomitant]
     Active Substance: LOSARTAN
     Indication: PRODUCT USED FOR UNKNOWN INDICATION
  9. REVATIO [Concomitant]
     Active Substance: SILDENAFIL CITRATE
     Indication: PRODUCT USED FOR UNKNOWN INDICATION
     Dosage: 2-5 TABLETS 1 HOUR PRIOR TO DESIRED EFFECT
     Route: 048
  10. MEVACOR [Concomitant]
     Active Substance: LOVASTATIN
     Indication: PRODUCT USED FOR UNKNOWN INDICATION
     Dosage: TAKE 1 TAB BY MOUTH AT BEDTIME
     Route: 048
  11. DULCOLAX NOS [Concomitant]
     Active Substance: BISACODYL OR DOCUSATE SODIUM
     Indication: PRODUCT USED FOR UNKNOWN INDICATION
     Dosage: AS INSTRUCTED PER WRITTEN DIRECTIONS
     Route: 065
  12. SERTRALINE [Concomitant]
     Active Substance: SERTRALINE HYDROCHLORIDE
     Indication: PRODUCT USED FOR UNKNOWN INDICATION
  13. LAXATIVE [Concomitant]
     Active Substance: UNSPECIFIED INGREDIENT
     Indication: PRODUCT USED FOR UNKNOWN INDICATION
  14. CARAFATE [Concomitant]
     Active Substance: SUCRALFATE
     Indication: PRODUCT USED FOR UNKNOWN INDICATION
     Route: 048
  15. LUPRON DEPOT [Suspect]
     Active Substance: LEUPROLIDE ACETATE
     Dosage: INJECTION TO RIGHT BUTTOCKS
     Route: 030
     Dates: start: 20170321, end: 20170321
  16. LUPRON DEPOT [Suspect]
     Active Substance: LEUPROLIDE ACETATE
     Dosage: INJECTION TO UPPER RIGHT SHOULDER
     Route: 030
     Dates: start: 20170912
  17. KEFLEX [Concomitant]
     Active Substance: CEPHALEXIN
     Indication: PRODUCT USED FOR UNKNOWN INDICATION
  18. APRESOLINE HYDROCHLORIDE [Concomitant]
     Active Substance: HYDRALAZINE HYDROCHLORIDE
     Indication: PRODUCT USED FOR UNKNOWN INDICATION
  19. REMERON [Concomitant]
     Active Substance: MIRTAZAPINE
     Indication: PRODUCT USED FOR UNKNOWN INDICATION
  20. LEVEMIR [Concomitant]
     Active Substance: INSULIN DETEMIR
     Indication: TYPE 2 DIABETES MELLITUS
     Dosage: INJECT 17 UNITS AT BEDTIME, INJECT 10 UNITS DAILY WITH BREAKFAST
     Route: 058
  21. ZOFRAN [Concomitant]
     Active Substance: ONDANSETRON HYDROCHLORIDE
     Indication: NAUSEA
     Dosage: TAKE 1 TAB BY MOUTH EVERY 6 HOURS AS NEEDED FOR NAUSEA/ VOMITING
     Route: 048
  22. PROTONIX [Concomitant]
     Active Substance: PANTOPRAZOLE SODIUM
     Indication: PRODUCT USED FOR UNKNOWN INDICATION
  23. ACETAMINOPHEN /HYDROCODONE [Concomitant]
     Active Substance: ACETAMINOPHEN\HYDROCODONE
     Indication: PRODUCT USED FOR UNKNOWN INDICATION
     Dosage: 7.5MG/325MG
  24. MEGESTROL [Concomitant]
     Active Substance: MEGESTROL
     Indication: PRODUCT USED FOR UNKNOWN INDICATION
     Dosage: 400MG/10 ML
  25. XTANDI [Concomitant]
     Active Substance: ENZALUTAMIDE
     Indication: PROSTATE CANCER
  26. ZOFRAN [Concomitant]
     Active Substance: ONDANSETRON HYDROCHLORIDE
     Indication: VOMITING
  27. CARDURA [Concomitant]
     Active Substance: DOXAZOSIN MESYLATE
     Indication: PRODUCT USED FOR UNKNOWN INDICATION
     Dosage: AFTER MEALS
     Route: 048
  28. PEPCID [Concomitant]
     Active Substance: FAMOTIDINE
     Indication: PRODUCT USED FOR UNKNOWN INDICATION
  29. SODIUM CHLORIDE. [Concomitant]
     Active Substance: SODIUM CHLORIDE
     Indication: PRODUCT USED FOR UNKNOWN INDICATION
     Dosage: TAKE 1 G BY MOUTH 2 TIMES DAILY WITH MORNING AND EVENING  MEAL
     Route: 048
  30. ECOTRIN [Concomitant]
     Active Substance: ASPIRIN
     Indication: PRODUCT USED FOR UNKNOWN INDICATION
     Route: 048
  31. SYNTHROID [Concomitant]
     Active Substance: LEVOTHYROXINE SODIUM
     Indication: HYPOTHYROIDISM
     Route: 048
  32. HUMALOG [Concomitant]
     Active Substance: INSULIN LISPRO
     Indication: PRODUCT USED FOR UNKNOWN INDICATION
     Dosage: BEFORE MEALS
     Route: 058
  33. REQUIP [Concomitant]
     Active Substance: ROPINIROLE HYDROCHLORIDE
     Indication: PRODUCT USED FOR UNKNOWN INDICATION
  34. LUPRON DEPOT [Suspect]
     Active Substance: LEUPROLIDE ACETATE
     Indication: PROSTATE CANCER
     Dosage: INJECTION TO LEFT BUTTOCKS
     Route: 030
     Dates: start: 20161101, end: 20161101
  35. PROVENGE [Concomitant]
     Active Substance: SIPULEUCEL-T
     Indication: PRODUCT USED FOR UNKNOWN INDICATION
     Dosage: ON DAYS 1, 15 AND 29X 1 CYCLE
     Dates: start: 20170504
  36. COZAAR [Concomitant]
     Active Substance: LOSARTAN POTASSIUM
     Indication: PRODUCT USED FOR UNKNOWN INDICATION
     Route: 048
  37. DURAGESIC [Concomitant]
     Active Substance: FENTANYL
     Indication: PRODUCT USED FOR UNKNOWN INDICATION

REACTIONS (67)
  - Depression [Unknown]
  - Decreased appetite [Recovered/Resolved]
  - Injection site abscess [Recovered/Resolved]
  - Hepatomegaly [Unknown]
  - Constipation [Unknown]
  - Hiccups [Not Recovered/Not Resolved]
  - Pyrexia [Unknown]
  - Injection site inflammation [Unknown]
  - Blood glucose increased [Unknown]
  - Perirectal abscess [Unknown]
  - Blood glucose fluctuation [Unknown]
  - Hyperkalaemia [Unknown]
  - Gastrooesophageal reflux disease [Unknown]
  - Hypoglycaemia [Unknown]
  - Nausea [Unknown]
  - Anaemia [Unknown]
  - Injection site pain [Unknown]
  - Asthenia [Unknown]
  - Dehydration [Recovered/Resolved]
  - Injection site pain [Recovered/Resolved]
  - Hypoglycaemia [Unknown]
  - Agitation [Unknown]
  - Thrombocytosis [Unknown]
  - Sinus tachycardia [Unknown]
  - Asthenia [Unknown]
  - Dyspnoea [Unknown]
  - Chills [Unknown]
  - Restless legs syndrome [Unknown]
  - Pain in extremity [Unknown]
  - Vomiting [Unknown]
  - Injection site swelling [Unknown]
  - Back pain [Unknown]
  - Ventricular extrasystoles [Unknown]
  - Bladder mass [Unknown]
  - Tremor [Unknown]
  - Seizure [Unknown]
  - Acute kidney injury [Unknown]
  - Nausea [Unknown]
  - Mental status changes [Unknown]
  - Encephalopathy [Unknown]
  - Vomiting [Unknown]
  - Injection site granuloma [Unknown]
  - Hepatic cyst [Unknown]
  - Glycosylated haemoglobin abnormal [Unknown]
  - Chest pain [Unknown]
  - Chills [Unknown]
  - Prostate cancer metastatic [Unknown]
  - Metabolic encephalopathy [Recovered/Resolved]
  - Hyponatraemia [Unknown]
  - Nausea [Recovered/Resolved]
  - Dehydration [Unknown]
  - Anxiety disorder [Unknown]
  - Hypovolaemia [Recovering/Resolving]
  - Blood creatinine increased [Recovering/Resolving]
  - Hyponatraemia [Recovering/Resolving]
  - Tumour lysis syndrome [Unknown]
  - Weight decreased [Unknown]
  - Hypophagia [Unknown]
  - Blood alkaline phosphatase increased [Unknown]
  - Injection site abscess [Recovered/Resolved]
  - Generalised tonic-clonic seizure [Unknown]
  - Blood urine present [Recovered/Resolved]
  - Memory impairment [Unknown]
  - Testicular pain [Unknown]
  - Tachycardia [Unknown]
  - Splenomegaly [Unknown]
  - Hyperglycaemia [Unknown]

NARRATIVE: CASE EVENT DATE: 201611
